FAERS Safety Report 11617120 (Version 1)
Quarter: 2015Q4

REPORT INFORMATION
  Report Type: Spontaneous
  Country: DE (occurrence: DE)
  Receive Date: 20151009
  Receipt Date: 20151009
  Transmission Date: 20160304
  Serious: Yes (Hospitalization)
  Sender: FDA-Public Use
  Company Number: DE-TEVA-595054GER

PATIENT
  Sex: Female
  Weight: 60 kg

DRUGS (1)
  1. VINCRISTIN TEVA 5 MG [Suspect]
     Active Substance: VINCRISTINE
     Indication: B-CELL LYMPHOMA
     Dosage: 1 MILLIGRAM DAILY;
     Route: 042
     Dates: start: 20150911

REACTIONS (2)
  - Application site necrosis [Not Recovered/Not Resolved]
  - Extravasation [Not Recovered/Not Resolved]

NARRATIVE: CASE EVENT DATE: 2015
